FAERS Safety Report 15605481 (Version 2)
Quarter: 2018Q4

REPORT INFORMATION
  Report Type: Spontaneous
  Country: US (occurrence: US)
  Receive Date: 20181112
  Receipt Date: 20181119
  Transmission Date: 20190205
  Serious: Yes (Hospitalization, Other)
  Sender: FDA-Public Use
  Company Number: US-PIRAMAL ENTERPRISES LIMITED-2018-PEL-003596

PATIENT

DRUGS (19)
  1. TYLENOL WITH CODEINE [Concomitant]
     Active Substance: ACETAMINOPHEN\CODEINE PHOSPHATE
     Indication: PAIN
     Dosage: UNK, PRN
  2. SERTRALINE [Concomitant]
     Active Substance: SERTRALINE HYDROCHLORIDE
     Indication: AFFECTIVE DISORDER
     Dosage: 100 MILLIGRAM, QD
  3. SIMETHICONE (DIMETHICONE) [Concomitant]
     Active Substance: DIMETHICONE
     Indication: FLATULENCE
     Dosage: 80 MILLIGRAM, PRN
     Route: 048
  4. TYLENOL [Concomitant]
     Active Substance: ACETAMINOPHEN
     Indication: PAIN
     Dosage: 650 MILLIGRAM, PRN
  5. BETAMETHASONE CLO [Concomitant]
     Indication: VULVOVAGINAL MYCOTIC INFECTION
     Dosage: AT BEDTIME AS NEEDED
     Route: 061
  6. MOTRIN [Concomitant]
     Active Substance: IBUPROFEN
     Indication: PAIN
     Dosage: 200 MILLIGRAM, PRN
     Route: 065
  7. GABLOFEN [Suspect]
     Active Substance: BACLOFEN
     Indication: PAIN
     Dosage: UNK
     Route: 037
     Dates: start: 20130410
  8. LIORESAL [Suspect]
     Active Substance: BACLOFEN
     Indication: MUSCLE SPASTICITY
     Dosage: 1183.4 MICROGRAM, QD
     Route: 037
  9. ALBUTEROL                          /00139501/ [Concomitant]
     Active Substance: ALBUTEROL
     Indication: PRODUCT USED FOR UNKNOWN INDICATION
     Dosage: (1.25 MG/3 ML) 3ML EVERY 8 HOURS
  10. LORAZEPAM. [Concomitant]
     Active Substance: LORAZEPAM
     Dosage: 0.5 MILLILITER, TID
     Route: 048
  11. CITRUCEL [Concomitant]
     Active Substance: METHYLCELLULOSE (4000 MPA.S)
     Indication: CONSTIPATION
     Dosage: 2 GRAM, QD
  12. ZOFRAN [Concomitant]
     Active Substance: ONDANSETRON HYDROCHLORIDE
     Indication: NAUSEA
     Dosage: 4 MILLIGRAM, BID
     Route: 048
  13. LORAZEPAM. [Concomitant]
     Active Substance: LORAZEPAM
     Indication: ANXIETY
     Dosage: 0.25 MILLILITER, TID
     Route: 060
  14. SCOPOLAMINE                        /00008701/ [Concomitant]
     Active Substance: SCOPOLAMINE
     Indication: SECRETION DISCHARGE
     Dosage: 1.5 MILLIGRAM, PRN
     Route: 062
  15. GLYCOPYRROLATE                     /00196201/ [Concomitant]
     Active Substance: GLYCOPYRRONIUM
     Dosage: 1 MILLIGRAM, BID
  16. OMEPRAZOLE. [Concomitant]
     Active Substance: OMEPRAZOLE
     Indication: DYSPEPSIA
     Dosage: 10 MILLILITER, QD
  17. ZOFRAN [Concomitant]
     Active Substance: ONDANSETRON HYDROCHLORIDE
     Indication: VOMITING
  18. MIRALAX [Concomitant]
     Active Substance: POLYETHYLENE GLYCOL 3350
     Indication: CONSTIPATION
     Dosage: 17 GRAM, QD
  19. FLOMAX [Concomitant]
     Active Substance: TAMSULOSIN HYDROCHLORIDE
     Indication: BLADDER SPASM
     Dosage: 0.4 MILLIGRAM, QD

REACTIONS (16)
  - Decubitus ulcer [Unknown]
  - Pain [Unknown]
  - Mental status changes [Unknown]
  - Asthenia [Unknown]
  - Depressed level of consciousness [Unknown]
  - Lethargy [Unknown]
  - Secretion discharge [Unknown]
  - Vomiting [Recovered/Resolved]
  - Pyrexia [Unknown]
  - Device malfunction [Recovered/Resolved]
  - Cystitis [Unknown]
  - Urinary tract infection [Unknown]
  - Overdose [Unknown]
  - Feeling abnormal [Recovered/Resolved]
  - Decreased appetite [Unknown]
  - Device failure [Unknown]

NARRATIVE: CASE EVENT DATE: 20180416
